FAERS Safety Report 6812679-5 (Version None)
Quarter: 2010Q3

REPORT INFORMATION
  Report Type: 
  Country: None (occurrence: None)
  Receive Date: 20100701
  Receipt Date: 20100624
  Transmission Date: 20110219
  Serious: Yes (Hospitalization)
  Sender: FDA-Public Use
  Company Number: US-ROCHE-711538

PATIENT
  Sex: Male

DRUGS (1)
  1. XELODA [Suspect]
     Dosage: 3 TABLETS IN MORNING AND 4 TABLETS IN EVENING FOR TWO WEEKS
     Route: 048

REACTIONS (1)
  - OESOPHAGEAL CARCINOMA [None]
